FAERS Safety Report 10100215 (Version 2)
Quarter: 2014Q2

REPORT INFORMATION
  Report Type: Spontaneous
  Country: US (occurrence: US)
  Receive Date: 20140423
  Receipt Date: 20140423
  Transmission Date: 20141212
  Serious: No
  Sender: FDA-Public Use
  Company Number: US-GILEAD-2013-0076014

PATIENT
  Sex: Female

DRUGS (5)
  1. LETAIRIS [Suspect]
     Indication: PULMONARY HYPERTENSION
     Route: 048
     Dates: start: 20130411
  2. LETAIRIS [Suspect]
     Indication: SCLERODERMA
  3. TYVASO [Concomitant]
  4. COUMADIN                           /00014802/ [Concomitant]
  5. REVATIO [Concomitant]

REACTIONS (1)
  - Vomiting [Unknown]
